FAERS Safety Report 10944789 (Version 2)
Quarter: 2015Q2

REPORT INFORMATION
  Report Type: Report from Study
  Country: AU (occurrence: AU)
  Receive Date: 20150323
  Receipt Date: 20150409
  Transmission Date: 20150821
  Serious: Yes (Death, Hospitalization, Other)
  Sender: FDA-Public Use
  Company Number: PHHY2015AU031683

PATIENT
  Sex: Male

DRUGS (1)
  1. CLOZARIL [Suspect]
     Active Substance: CLOZAPINE
     Indication: SCHIZOPHRENIA
     Dosage: 150 OT
     Route: 048
     Dates: start: 20120724

REACTIONS (5)
  - Lung neoplasm malignant [Fatal]
  - Chronic kidney disease [Unknown]
  - Parkinson^s disease [Fatal]
  - Pneumonia aspiration [Fatal]
  - Neoplasm malignant [Unknown]
